FAERS Safety Report 7874668-1 (Version None)
Quarter: 2011Q4

REPORT INFORMATION
  Report Type: 
  Country: None (occurrence: None)
  Receive Date: 20111031
  Receipt Date: 20111018
  Transmission Date: 20120403
  Serious: No
  Sender: FDA-Public Use
  Company Number: US-PFIZER INC-2011262083

PATIENT
  Sex: Male
  Weight: 85.261 kg

DRUGS (1)
  1. LIPITOR [Suspect]

REACTIONS (2)
  - PSORIASIS [None]
  - ARTHRALGIA [None]
